FAERS Safety Report 15110594 (Version 2)
Quarter: 2018Q3

REPORT INFORMATION
  Report Type: Report from Study
  Country: JP (occurrence: JP)
  Receive Date: 20180705
  Receipt Date: 20180803
  Transmission Date: 20181010
  Serious: Yes (Other)
  Sender: FDA-Public Use
  Company Number: PHJP2018JP013399

PATIENT
  Age: 68 Year
  Sex: Female

DRUGS (2)
  1. TAFINLAR [Suspect]
     Active Substance: DABRAFENIB MESYLATE
     Indication: MALIGNANT MELANOMA STAGE IV
     Dosage: 300 MG, UNK
     Route: 048
     Dates: start: 20170425, end: 20171211
  2. MEKINIST [Suspect]
     Active Substance: TRAMETINIB DIMETHYL SULFOXIDE
     Indication: MALIGNANT MELANOMA STAGE IV
     Dosage: 2 MG, UNK
     Route: 048
     Dates: start: 20170425, end: 20171211

REACTIONS (4)
  - Pyrexia [Recovering/Resolving]
  - Pneumonia [Recovering/Resolving]
  - Malignant neoplasm progression [Not Recovered/Not Resolved]
  - Malignant melanoma stage IV [Not Recovered/Not Resolved]

NARRATIVE: CASE EVENT DATE: 20170521
